FAERS Safety Report 10463766 (Version 4)
Quarter: 2014Q4

REPORT INFORMATION
  Report Type: Report from Study
  Country: JP (occurrence: JP)
  Receive Date: 20140919
  Receipt Date: 20141020
  Transmission Date: 20150528
  Serious: Yes (Other)
  Sender: FDA-Public Use
  Company Number: JP-EISAI MEDICAL RESEARCH-E2020-14450-SOL-JP

PATIENT
  Age: 83 Year
  Sex: Male

DRUGS (3)
  1. ARICEPT [Suspect]
     Active Substance: DONEPEZIL HYDROCHLORIDE
     Route: 048
     Dates: start: 20140421
  2. ARICEPT [Suspect]
     Active Substance: DONEPEZIL HYDROCHLORIDE
     Indication: DEMENTIA ALZHEIMER^S TYPE
     Route: 048
     Dates: start: 20101220, end: 20111023
  3. ARICEPT [Suspect]
     Active Substance: DONEPEZIL HYDROCHLORIDE
     Route: 048
     Dates: start: 20111024, end: 20140420

REACTIONS (4)
  - Lacunar infarction [None]
  - Hallucination [Recovering/Resolving]
  - Gait disturbance [Recovering/Resolving]
  - Dementia with Lewy bodies [Recovering/Resolving]

NARRATIVE: CASE EVENT DATE: 201404
